FAERS Safety Report 8029393-3 (Version None)
Quarter: 2012Q1

REPORT INFORMATION
  Report Type: 
  Country: None (occurrence: None)
  Receive Date: 20120106
  Receipt Date: 20120104
  Transmission Date: 20120608
  Serious: Yes (Other)
  Sender: FDA-Public Use
  Company Number: TW-ROCHE-1027524

PATIENT
  Age: 12 Year
  Sex: Female
  Weight: 41 kg

DRUGS (6)
  1. TAMIFLU [Suspect]
     Indication: INFLUENZA
     Route: 048
     Dates: start: 20111231, end: 20120104
  2. ACETAMINOPHEN [Concomitant]
     Route: 048
     Dates: start: 20111231
  3. BUTAMIRATE [Concomitant]
     Route: 048
     Dates: start: 20111231
  4. MOTILIUM-M [Concomitant]
     Route: 048
     Dates: start: 20111231
  5. PSEUDOEPHEDRINE HCL [Concomitant]
     Route: 048
     Dates: start: 20111231
  6. LORATADINE [Concomitant]
     Route: 048
     Dates: start: 20111231

REACTIONS (2)
  - TREMOR [None]
  - INSOMNIA [None]
